FAERS Safety Report 9504313 (Version 1)
Quarter: 2013Q3

REPORT INFORMATION
  Report Type: Report from Study
  Country: US (occurrence: US)
  Receive Date: 20130906
  Receipt Date: 20130906
  Transmission Date: 20140515
  Serious: Yes (Other)
  Sender: FDA-Public Use
  Company Number: US-US-EMD SERONO, INC.-7234855

PATIENT
  Age: 44 Year
  Sex: Female

DRUGS (2)
  1. REBIF [Suspect]
     Indication: PRODUCT USED FOR UNKNOWN INDICATION
     Route: 058
     Dates: start: 20050625, end: 20120626
  2. REBIF [Suspect]
     Route: 058
     Dates: start: 20130628

REACTIONS (3)
  - Cervix carcinoma [Unknown]
  - Glucose tolerance impaired [Not Recovered/Not Resolved]
  - Memory impairment [Not Recovered/Not Resolved]
